FAERS Safety Report 5596646-8 (Version None)
Quarter: 2008Q1

REPORT INFORMATION
  Report Type: 
  Country: None (occurrence: None)
  Receive Date: 20080118
  Receipt Date: 20080109
  Transmission Date: 20080703
  Serious: Yes (Death)
  Sender: FDA-Public Use
  Company Number: US-PFIZER INC-2008003057

PATIENT
  Age: 71 Year
  Sex: Female

DRUGS (7)
  1. ATORVASTATIN [Suspect]
  2. LISINOPRIL [Suspect]
  3. CARDIAC GLYCOSIDES [Suspect]
  4. CLONIDINE [Suspect]
  5. CALCIUM CHANNEL BLOCKERS [Suspect]
  6. CARVEDILOL [Suspect]
  7. FAMOTIDINE [Suspect]

REACTIONS (1)
  - ACCIDENTAL EXPOSURE [None]
